FAERS Safety Report 24155908 (Version 1)
Quarter: 2024Q3

REPORT INFORMATION
  Report Type: Spontaneous
  Country: US (occurrence: US)
  Receive Date: 20240731
  Receipt Date: 20240731
  Transmission Date: 20241017
  Serious: Yes (Hospitalization)
  Sender: NOVARTIS
  Company Number: US-002147023-NVSC2024US153007

PATIENT
  Sex: Female

DRUGS (2)
  1. MEKINIST [Suspect]
     Active Substance: TRAMETINIB DIMETHYL SULFOXIDE
     Indication: Pancreatic carcinoma
     Dosage: 2 MG, QD
     Route: 048
     Dates: start: 202402
  2. TAFINLAR [Suspect]
     Active Substance: DABRAFENIB MESYLATE
     Indication: Pancreatic carcinoma
     Dosage: 75 MG, Q12H
     Route: 048
     Dates: start: 202402

REACTIONS (2)
  - Urinary tract infection [Unknown]
  - Hypersomnia [Unknown]
